FAERS Safety Report 5674811-9 (Version None)
Quarter: 2008Q1

REPORT INFORMATION
  Report Type: 
  Country: None (occurrence: None)
  Receive Date: 20080320
  Receipt Date: 20080312
  Transmission Date: 20080703
  Serious: Yes (Other)
  Sender: FDA-Public Use
  Company Number: US-PFIZER INC-2007083488

PATIENT
  Sex: Female
  Weight: 65.909 kg

DRUGS (8)
  1. LIPITOR [Suspect]
     Indication: BLOOD CHOLESTEROL
     Dates: start: 20060101, end: 20070525
  2. SYNTHROID [Concomitant]
     Indication: THYROID DISORDER
  3. AMLODIPINE [Concomitant]
  4. DIOVAN HCT [Concomitant]
     Dosage: TEXT:80/12.5MG
  5. CELEBREX [Concomitant]
  6. VITAMIN B12 FOR INJECTION [Concomitant]
  7. PREVACID [Concomitant]
  8. PULMICORT [Concomitant]

REACTIONS (7)
  - ADVERSE DRUG REACTION [None]
  - ARTHRALGIA [None]
  - CHEST PAIN [None]
  - GASTROOESOPHAGEAL REFLUX DISEASE [None]
  - INSOMNIA [None]
  - MYALGIA [None]
  - ORAL INTAKE REDUCED [None]
